FAERS Safety Report 6809246-6 (Version None)
Quarter: 2010Q2

REPORT INFORMATION
  Report Type: 
  Country: None (occurrence: None)
  Receive Date: 20100630
  Receipt Date: 20100614
  Transmission Date: 20101027
  Serious: Yes (Hospitalization, Other)
  Sender: FDA-Public Use
  Company Number: US-BAYER-201018310NA

PATIENT
  Age: 33 Year
  Sex: Female
  Weight: 66 kg

DRUGS (7)
  1. YAZ [Suspect]
     Indication: PREMATURE MENOPAUSE
     Route: 048
     Dates: start: 20070501, end: 20090601
  2. YAZ [Suspect]
     Route: 048
     Dates: start: 20090212, end: 20090604
  3. FLUOXETINE [Concomitant]
     Dates: start: 20040101
  4. NORETHINDRONE ACETATE [Concomitant]
     Route: 048
     Dates: start: 20041016, end: 20060615
  5. SSRI [Concomitant]
     Indication: ANXIETY
  6. SSRI [Concomitant]
     Indication: DEPRESSION
  7. PROZAC [Concomitant]
     Dosage: TOTAL DAILY DOSE: 40 MG

REACTIONS (5)
  - ANXIETY [None]
  - CHEST PAIN [None]
  - DEPRESSION [None]
  - DYSPNOEA [None]
  - PULMONARY EMBOLISM [None]
